FAERS Safety Report 16410387 (Version 1)
Quarter: 2019Q2

REPORT INFORMATION
  Report Type: Spontaneous
  Country: US (occurrence: US)
  Receive Date: 20190610
  Receipt Date: 20190610
  Transmission Date: 20190711
  Serious: No
  Sender: FDA-Public Use
  Company Number: US-PFIZER INC-2019237480

PATIENT
  Age: 74 Year
  Sex: Female
  Weight: 46.67 kg

DRUGS (2)
  1. TIKOSYN [Suspect]
     Active Substance: DOFETILIDE
     Dosage: 375 UG, TWICE A DAY
     Route: 048
     Dates: start: 20160801
  2. TIKOSYN [Suspect]
     Active Substance: DOFETILIDE
     Indication: ATRIAL FIBRILLATION
     Dosage: 250 UG, TWICE A DAY
     Route: 048

REACTIONS (1)
  - Therapeutic product effect incomplete [Recovered/Resolved]
